FAERS Safety Report 13569729 (Version 1)
Quarter: 2017Q2

REPORT INFORMATION
  Report Type: Spontaneous
  Country: FR (occurrence: FR)
  Receive Date: 20170522
  Receipt Date: 20170522
  Transmission Date: 20170830
  Serious: Yes (Death)
  Sender: FDA-Public Use
  Company Number: FR-TEVA-770923ROM

PATIENT
  Age: 83 Year
  Sex: Male

DRUGS (4)
  1. ELIQUIS [Suspect]
     Active Substance: APIXABAN
     Indication: ATRIAL FIBRILLATION
     Dosage: 2 DOSAGE FORMS DAILY;
     Route: 048
     Dates: end: 20170423
  2. PANTOPRAZOLE SODIUM. [Suspect]
     Active Substance: PANTOPRAZOLE SODIUM
     Indication: PRODUCT USED FOR UNKNOWN INDICATION
     Dosage: 1 DOSAGE FORMS DAILY;
     Route: 048
     Dates: start: 20170422, end: 20170423
  3. FRAGMINE [Suspect]
     Active Substance: DALTEPARIN SODIUM
     Indication: PRODUCT USED FOR UNKNOWN INDICATION
     Dosage: 1 DOSAGE FORMS DAILY;
     Route: 058
     Dates: start: 20170422, end: 20170423
  4. TRAMADOL. [Suspect]
     Active Substance: TRAMADOL
     Indication: BACK PAIN
     Dosage: 100 MILLIGRAM DAILY;
     Route: 048
     Dates: start: 20170422, end: 20170423

REACTIONS (1)
  - Cerebral haemorrhage [Fatal]

NARRATIVE: CASE EVENT DATE: 20170424
